FAERS Safety Report 4360224-9 (Version None)
Quarter: 2004Q2

REPORT INFORMATION
  Report Type: 
  Country: None (occurrence: None)
  Receive Date: 20040513
  Receipt Date: 20040430
  Transmission Date: 20050107
  Serious: Yes (Life-Threatening, Other)
  Sender: FDA-Public Use
  Company Number: 2004021850

PATIENT
  Sex: Male
  Weight: 89.8122 kg

DRUGS (6)
  1. VIAGRA [Suspect]
     Indication: ERECTILE DYSFUNCTION
     Dosage: 100 MG (100 MG, AS NEEDED), ORAL
     Route: 048
     Dates: start: 20030101
  2. VARDENAFIL HYDROCHLORIDE (VARDENAFIL HYDROCHLORIDE) [Suspect]
     Indication: ILL-DEFINED DISORDER
  3. COMBIVENT (IPRATROPIUM BROMIDE, SULBUTAMOL SULFATE) [Concomitant]
  4. FLUTICASONE PROPIONATE [Concomitant]
  5. TERAZOSIN HYDROCHLORIDE [Concomitant]
  6. SALMETEROL XINAFOATE (SALMETEROL XINAFOATE) [Concomitant]

REACTIONS (2)
  - DRUG INEFFECTIVE [None]
  - PHARMACEUTICAL PRODUCT COMPLAINT [None]
